FAERS Safety Report 7249548-5 (Version None)
Quarter: 2011Q1

REPORT INFORMATION
  Report Type: 
  Country: None (occurrence: None)
  Receive Date: 20110121
  Receipt Date: 20110121
  Transmission Date: 20110831
  Serious: Yes (Hospitalization)
  Sender: FDA-Public Use
  Company Number: None

PATIENT

DRUGS (1)
  1. DIATRIZOATE MEGLUMINE [Suspect]
     Dates: start: 20100802, end: 20100802

REACTIONS (3)
  - SNEEZING [None]
  - ANAPHYLACTIC REACTION [None]
  - HYPOTENSION [None]
